FAERS Safety Report 5620093-3 (Version None)
Quarter: 2008Q1

REPORT INFORMATION
  Report Type: 
  Country: None (occurrence: None)
  Receive Date: 20080208
  Receipt Date: 20080201
  Transmission Date: 20080703
  Serious: Yes (Other)
  Sender: FDA-Public Use
  Company Number: JP-MERCK-0802USA00918

PATIENT
  Age: 4 Year
  Sex: Female

DRUGS (5)
  1. SINGULAIR [Suspect]
     Indication: ASTHMA
     Route: 048
     Dates: start: 20071225, end: 20071225
  2. MEPTIN [Concomitant]
     Indication: ASTHMA
     Route: 048
  3. ASVERIN [Concomitant]
     Indication: COUGH
     Route: 048
  4. MUCODYNE [Concomitant]
     Indication: SPUTUM RETENTION
     Route: 048
  5. PERIACTIN [Concomitant]
     Indication: COUGH
     Route: 048

REACTIONS (1)
  - DELIRIUM [None]
